FAERS Safety Report 4558420-0 (Version None)
Quarter: 2005Q1

REPORT INFORMATION
  Report Type: 
  Country: None (occurrence: None)
  Receive Date: 20050103
  Receipt Date: 20041005
  Transmission Date: 20050727
  Serious: Yes (Other)
  Sender: FDA-Public Use
  Company Number: 2004UW20811

PATIENT
  Age: 65 Year
  Sex: Female

DRUGS (1)
  1. CRESTOR [Suspect]
     Dosage: 10 MG DAILY PO
     Route: 048

REACTIONS (4)
  - ANOREXIA [None]
  - DEPRESSION [None]
  - DIARRHOEA [None]
  - PYREXIA [None]
